FAERS Safety Report 7358958-7 (Version None)
Quarter: 2011Q1

REPORT INFORMATION
  Report Type: 
  Country: None (occurrence: None)
  Receive Date: 20110317
  Receipt Date: 20110310
  Transmission Date: 20110831
  Serious: Yes (Hospitalization, Other)
  Sender: FDA-Public Use
  Company Number: US-ELI_LILLY_AND_COMPANY-US201103004492

PATIENT
  Age: 55 Year
  Sex: Female

DRUGS (3)
  1. ZYPREXA [Suspect]
     Dosage: 60 MG, UNKNOWN
  2. ZYPREXA [Suspect]
     Dosage: UNK, UNKNOWN
  3. ZYPREXA [Suspect]
     Dosage: 40 MG, UNKNOWN

REACTIONS (6)
  - HOSPITALISATION [None]
  - AGGRESSION [None]
  - OVERDOSE [None]
  - HOMICIDAL IDEATION [None]
  - SLEEP DISORDER [None]
  - DRUG INEFFECTIVE [None]
